FAERS Safety Report 21499237 (Version 12)
Quarter: 2023Q1

REPORT INFORMATION
  Report Type: Report from Study
  Country: NO (occurrence: None)
  Receive Date: 20221024
  Receipt Date: 20230131
  Transmission Date: 20230417
  Serious: Yes (Hospitalization)
  Sender: FDA-Public Use
  Company Number: NO-Eisai Medical Research-EC-2022-126300

PATIENT
  Age: 79 Year
  Sex: Male
  Weight: 80.5 kg

DRUGS (12)
  1. LENVATINIB [Suspect]
     Active Substance: LENVATINIB
     Indication: Clear cell renal cell carcinoma
     Route: 048
     Dates: start: 20220915, end: 20221007
  2. LENVATINIB [Suspect]
     Active Substance: LENVATINIB
     Dosage: STARTING DOSE AT 14 MG, FLUCTUATED DOSAGE.
     Route: 048
     Dates: start: 20221028
  3. QUAVONLIMAB [Suspect]
     Active Substance: QUAVONLIMAB
     Indication: Clear cell renal cell carcinoma
     Dosage: MK-1308A 425 MG (QUAVONLIMAB (MK-1308) 25 MG + PEMBROLIZUMAB (MK-3475) 400MG)
     Route: 042
     Dates: start: 20220915, end: 20220915
  4. QUAVONLIMAB [Suspect]
     Active Substance: QUAVONLIMAB
     Dosage: MK-1308A 425 MG (QUAVONLIMAB (MK-1308) 25 MG + PEMBROLIZUMAB (MK-3475) 400MG)
     Route: 042
     Dates: start: 20221028
  5. HYDROCHLOROTHIAZIDE\LOSARTAN POTASSIUM [Concomitant]
     Active Substance: HYDROCHLOROTHIAZIDE\LOSARTAN POTASSIUM
     Dates: start: 20220923, end: 20221118
  6. MOVICOL [Concomitant]
     Active Substance: POLYETHYLENE GLYCOL 3350\POTASSIUM CHLORIDE\SODIUM BICARBONATE\SODIUM CHLORIDE
     Dates: start: 20220929
  7. AMLODIPINE [Concomitant]
     Active Substance: AMLODIPINE BESYLATE
     Dates: start: 20191213
  8. ALLOPURINOL [Concomitant]
     Active Substance: ALLOPURINOL
     Dates: start: 20191213
  9. APIXABAN [Concomitant]
     Active Substance: APIXABAN
     Dates: start: 20220211
  10. NUTRIDRINK COMPACT [Concomitant]
     Dates: start: 20221005
  11. PEMBROLIZUMAB [Suspect]
     Active Substance: PEMBROLIZUMAB
     Dates: start: 20220915
  12. PEMBROLIZUMAB [Suspect]
     Active Substance: PEMBROLIZUMAB
     Dates: start: 20221028

REACTIONS (3)
  - Febrile neutropenia [Recovered/Resolved]
  - Neutrophil count decreased [Recovered/Resolved]
  - Anaemia [Recovered/Resolved]

NARRATIVE: CASE EVENT DATE: 20221013
